FAERS Safety Report 19224154 (Version 1)
Quarter: 2021Q2

REPORT INFORMATION
  Report Type: Spontaneous
  Country: US (occurrence: US)
  Receive Date: 20210505
  Receipt Date: 20210505
  Transmission Date: 20210717
  Serious: No
  Sender: FDA-Public Use
  Company Number: US-ROCHE-2578822

PATIENT
  Sex: Male

DRUGS (10)
  1. PRILOSEC [Concomitant]
     Active Substance: OMEPRAZOLE MAGNESIUM
  2. LANTUS [Concomitant]
     Active Substance: INSULIN GLARGINE
     Dosage: DOSE 100 UNIT/ML
  3. GABAPENTINE [Concomitant]
     Active Substance: GABAPENTIN
  4. COUMADIN [Concomitant]
     Active Substance: WARFARIN SODIUM
  5. MAGNESIUM [Concomitant]
     Active Substance: MAGNESIUM
  6. HUMALOG [Concomitant]
     Active Substance: INSULIN LISPRO
  7. ESBRIET [Suspect]
     Active Substance: PIRFENIDONE
     Indication: PRODUCT USED FOR UNKNOWN INDICATION
     Route: 048
  8. ALBUTEROL. [Concomitant]
     Active Substance: ALBUTEROL
     Dosage: 5 MG/ML
  9. PREDNISONE. [Concomitant]
     Active Substance: PREDNISONE
  10. METFORMIN [Concomitant]
     Active Substance: METFORMIN HYDROCHLORIDE

REACTIONS (1)
  - Memory impairment [Unknown]
